FAERS Safety Report 6173791-X (Version None)
Quarter: 2009Q2

REPORT INFORMATION
  Report Type: 
  Country: None (occurrence: None)
  Receive Date: 20090429
  Receipt Date: 20090429
  Transmission Date: 20091009
  Serious: Yes (Hospitalization)
  Sender: FDA-Public Use
  Company Number: None

PATIENT
  Sex: Female
  Weight: 73.9363 kg

DRUGS (2)
  1. DIGOXIN [Suspect]
     Indication: ARRHYTHMIA
     Dosage: ONE TABLET EVERY DAY
     Dates: start: 20081118
  2. DIGOXIN [Suspect]
     Indication: ARRHYTHMIA
     Dosage: ONE TABLET EVERY DAY
     Dates: start: 20090212, end: 20090406

REACTIONS (2)
  - ATRIAL FIBRILLATION [None]
  - PRODUCT QUALITY ISSUE [None]
